FAERS Safety Report 7875372-6 (Version None)
Quarter: 2011Q4

REPORT INFORMATION
  Report Type: 
  Country: None (occurrence: None)
  Receive Date: 20111031
  Receipt Date: 20111021
  Transmission Date: 20120403
  Serious: Yes (Hospitalization)
  Sender: FDA-Public Use
  Company Number: FR-GLAXOSMITHKLINE-B0751799A

PATIENT
  Sex: Female

DRUGS (6)
  1. DIETARY SUPPLEMENT [Concomitant]
     Indication: GASTROINTESTINAL DISORDER
  2. XELODA [Suspect]
     Indication: BREAST CANCER METASTATIC
     Dosage: 2500MG PER DAY
     Route: 048
     Dates: start: 20110425, end: 20110727
  3. LAPATINIB [Suspect]
     Indication: BREAST CANCER METASTATIC
     Dosage: 1000MG PER DAY
     Route: 048
     Dates: start: 20110424, end: 20110727
  4. ALUMINUM HYDROXIDE AND MAGNESIUM TRISILICATE [Concomitant]
     Indication: GASTROINTESTINAL DISORDER
     Dates: start: 20110421
  5. PRIMPERAN TAB [Concomitant]
     Indication: GASTROINTESTINAL DISORDER
  6. IV REHYDRATION [Concomitant]
     Indication: GASTROINTESTINAL DISORDER

REACTIONS (2)
  - HEPATOCELLULAR INJURY [None]
  - CYTOLYTIC HEPATITIS [None]
